FAERS Safety Report 6278351-8 (Version None)
Quarter: 2009Q3

REPORT INFORMATION
  Report Type: 
  Country: None (occurrence: None)
  Receive Date: 20090720
  Receipt Date: 20090720
  Transmission Date: 20100115
  Serious: Yes (Other)
  Sender: FDA-Public Use
  Company Number: None

PATIENT
  Sex: Female
  Weight: 113.3993 kg

DRUGS (3)
  1. ARIMIDEX [Suspect]
     Indication: BREAST CANCER
     Dosage: 1 DAILY PO
     Route: 048
     Dates: start: 20081110, end: 20090612
  2. ARIMIDEX [Suspect]
     Indication: DISEASE RECURRENCE
     Dosage: 1 DAILY PO
     Route: 048
     Dates: start: 20081110, end: 20090612
  3. ARIMIDEX [Suspect]
     Indication: PROPHYLAXIS
     Dosage: 1 DAILY PO
     Route: 048
     Dates: start: 20081110, end: 20090612

REACTIONS (7)
  - BACK PAIN [None]
  - BLOOD CHOLESTEROL INCREASED [None]
  - CHEST PAIN [None]
  - DEPRESSION [None]
  - HEADACHE [None]
  - HYPERTENSION [None]
  - PAIN IN EXTREMITY [None]
